FAERS Safety Report 9539460 (Version 1)
Quarter: 2013Q3

REPORT INFORMATION
  Report Type: Report from Study
  Country: GB (occurrence: GB)
  Receive Date: 20130920
  Receipt Date: 20130920
  Transmission Date: 20140515
  Serious: Yes (Death, Other)
  Sender: FDA-Public Use
  Company Number: GB-ROCHE-1272967

PATIENT
  Sex: 0

DRUGS (9)
  1. RITUXIMAB [Suspect]
     Indication: DIFFUSE LARGE B-CELL LYMPHOMA
     Route: 065
  2. CYCLOPHOSPHAMIDE [Suspect]
     Indication: DIFFUSE LARGE B-CELL LYMPHOMA
     Route: 065
  3. DOXORUBICIN [Suspect]
     Indication: DIFFUSE LARGE B-CELL LYMPHOMA
     Route: 065
  4. VINCRISTINE [Suspect]
     Indication: DIFFUSE LARGE B-CELL LYMPHOMA
     Route: 065
  5. PREDNISOLONE [Suspect]
     Indication: DIFFUSE LARGE B-CELL LYMPHOMA
     Route: 065
  6. METHOTREXATE [Suspect]
     Indication: DIFFUSE LARGE B-CELL LYMPHOMA
     Route: 065
  7. ETOPOSIDE [Suspect]
     Indication: DIFFUSE LARGE B-CELL LYMPHOMA
     Route: 065
  8. IFOSFAMIDE [Suspect]
     Indication: DIFFUSE LARGE B-CELL LYMPHOMA
     Route: 065
  9. CYTARABINE [Suspect]
     Indication: DIFFUSE LARGE B-CELL LYMPHOMA
     Route: 065

REACTIONS (39)
  - Infection [Fatal]
  - Hepatitis B [Unknown]
  - Cytomegalovirus infection [Unknown]
  - Pneumocystis jirovecii infection [Unknown]
  - Lower respiratory tract infection bacterial [Unknown]
  - Wound infection [Unknown]
  - Retinitis [Unknown]
  - Herpes simplex [Unknown]
  - Tinea versicolour [Unknown]
  - Cerebral toxoplasmosis [Unknown]
  - Herpes zoster [Unknown]
  - Oesophageal candidiasis [Unknown]
  - Oral candidiasis [Unknown]
  - Giardiasis [Unknown]
  - Urinary tract infection [Unknown]
  - Tooth abscess [Unknown]
  - Anal abscess [Unknown]
  - Clostridium difficile infection [Unknown]
  - Mucosal inflammation [Unknown]
  - Diarrhoea [Unknown]
  - Vomiting [Unknown]
  - Gastrointestinal perforation [Unknown]
  - Tumour lysis syndrome [Unknown]
  - Neuropathy peripheral [Unknown]
  - Hepatic enzyme increased [Unknown]
  - Renal impairment [Unknown]
  - Pathological fracture [Unknown]
  - Convulsion [Unknown]
  - Cardiac failure [Unknown]
  - Embolism arterial [Unknown]
  - Post lumbar puncture syndrome [Unknown]
  - Intestinal obstruction [Unknown]
  - Cholecystitis [Unknown]
  - Haematuria [Unknown]
  - Decubitus ulcer [Unknown]
  - Myalgia [Unknown]
  - Neutropenia [Unknown]
  - Bacteraemia [Unknown]
  - Pyrexia [Unknown]
